FAERS Safety Report 8887177 (Version 1)
Quarter: 2012Q4

REPORT INFORMATION
  Report Type: 
  Country: CA (occurrence: CA)
  Receive Date: 20121105
  Receipt Date: 20121105
  Transmission Date: 20130627
  Serious: Yes (Other)
  Sender: FDA-Public Use
  Company Number: CA-ASTRAZENECA-2012SE81886

PATIENT
  Age: 78 Year

DRUGS (3)
  1. PLAVIX [Suspect]
     Route: 048
  2. NEXIUM [Interacting]
     Dosage: AT NIGHT
     Route: 048
  3. ASPIRIN [Concomitant]

REACTIONS (3)
  - Drug interaction [Unknown]
  - Gastric disorder [Unknown]
  - Pulmonary thrombosis [Unknown]
